FAERS Safety Report 19967112 (Version 1)
Quarter: 2021Q4

REPORT INFORMATION
  Report Type: Spontaneous
  Country: US (occurrence: US)
  Receive Date: 20211019
  Receipt Date: 20211019
  Transmission Date: 20220303
  Serious: No
  Sender: FDA-Public Use
  Company Number: US-TEVA-2021-US-1962102

PATIENT
  Age: 57 Year
  Sex: Female
  Weight: 58.97 kg

DRUGS (6)
  1. PREDNISOLONE [Suspect]
     Active Substance: PREDNISOLONE
     Route: 065
  2. GABAPENTIN [Suspect]
     Active Substance: GABAPENTIN
     Indication: Neurological symptom
     Route: 065
  3. GABAPENTIN [Suspect]
     Active Substance: GABAPENTIN
     Indication: Neuralgia
     Dosage: 2400 MILLIGRAM DAILY;
     Route: 065
  4. ALBUTEROL [Suspect]
     Active Substance: ALBUTEROL
     Route: 065
  5. PFIZER-BIONTECH COVID-19 VACCINE [Suspect]
     Active Substance: TOZINAMERAN
     Route: 065
     Dates: start: 20210502
  6. PFIZER-BIONTECH COVID-19 VACCINE [Suspect]
     Active Substance: TOZINAMERAN
     Route: 065
     Dates: start: 20210923

REACTIONS (10)
  - Asthma [Unknown]
  - Dyspnoea [Unknown]
  - Urticaria [Unknown]
  - Drug ineffective [Unknown]
  - Migraine [Unknown]
  - Gait inability [Unknown]
  - Nasopharyngitis [Unknown]
  - Hypoaesthesia [Unknown]
  - Malaise [Unknown]
  - Product use in unapproved indication [Unknown]

NARRATIVE: CASE EVENT DATE: 20210502
